FAERS Safety Report 21354075 (Version 1)
Quarter: 2022Q3

REPORT INFORMATION
  Report Type: Spontaneous
  Country: SE (occurrence: SE)
  Receive Date: 20220920
  Receipt Date: 20220920
  Transmission Date: 20221027
  Serious: Yes (Life-Threatening, Other)
  Sender: FDA-Public Use
  Company Number: SE-ORESUND-22OPAZA1557P

PATIENT
  Sex: Female

DRUGS (1)
  1. TRASTUZUMAB [Suspect]
     Active Substance: TRASTUZUMAB
     Indication: Product used for unknown indication
     Dosage: UNK
     Route: 065

REACTIONS (20)
  - Cardiotoxicity [Unknown]
  - Sensory level abnormal [Unknown]
  - Physical capacity evaluation [Unknown]
  - Factitious disorder [Unknown]
  - Sexual dysfunction [Unknown]
  - Decreased activity [Unknown]
  - Mental status changes [Unknown]
  - Adverse drug reaction [Unknown]
  - Impaired healing [Unknown]
  - Patient uncooperative [Unknown]
  - Physical disability [Unknown]
  - Emotional distress [Unknown]
  - Emotional disorder [Unknown]
  - Weight increased [Unknown]
  - Quality of life decreased [Unknown]
  - Pain [Unknown]
  - Bone pain [Unknown]
  - Back pain [Unknown]
  - Fatigue [Unknown]
  - Hot flush [Unknown]
